FAERS Safety Report 18798868 (Version 1)
Quarter: 2021Q1

REPORT INFORMATION
  Report Type: Spontaneous
  Country: US (occurrence: US)
  Receive Date: 20210127
  Receipt Date: 20210127
  Transmission Date: 20210419
  Serious: Yes (Hospitalization)
  Sender: FDA-Public Use
  Company Number: None

PATIENT
  Age: 47 Year
  Sex: Female
  Weight: 63 kg

DRUGS (1)
  1. QSYMIA [Suspect]
     Active Substance: PHENTERMINE HYDROCHLORIDE\TOPIRAMATE
     Indication: WEIGHT DECREASED
     Dosage: ?          QUANTITY:7.5 CAPSULE(S);?
     Route: 048
     Dates: start: 20201210, end: 20210126

REACTIONS (4)
  - Aggression [None]
  - Delusion [None]
  - Psychotic disorder [None]
  - Insomnia [None]

NARRATIVE: CASE EVENT DATE: 20210127
